FAERS Safety Report 7792542-6 (Version None)
Quarter: 2011Q3

REPORT INFORMATION
  Report Type: 
  Country: None (occurrence: None)
  Receive Date: 20110930
  Receipt Date: 20110930
  Transmission Date: 20111222
  Serious: No
  Sender: FDA-Public Use
  Company Number: None

PATIENT
  Age: 79 Year
  Sex: Female
  Weight: 41.7309 kg

DRUGS (1)
  1. CHLORDIAZEPOXIDE HCL AND CLIDINIUM BROMIDE [Suspect]
     Indication: ABDOMINAL PAIN
     Dosage: 2.5 MG 1 A DAY ORAL
     Route: 048
     Dates: start: 20110915, end: 20110917

REACTIONS (3)
  - CONFUSIONAL STATE [None]
  - VISUAL IMPAIRMENT [None]
  - FEELING ABNORMAL [None]
